FAERS Safety Report 5748064-7 (Version None)
Quarter: 2008Q2

REPORT INFORMATION
  Report Type: 
  Country: None (occurrence: None)
  Receive Date: 20080523
  Receipt Date: 20080512
  Transmission Date: 20081010
  Serious: Yes (Other)
  Sender: FDA-Public Use
  Company Number: US-ELI_LILLY_AND_COMPANY-US200805002451

PATIENT
  Sex: Female
  Weight: 77.1 kg

DRUGS (3)
  1. CYMBALTA [Suspect]
     Indication: PAIN
  2. NEURONTIN [Concomitant]
     Indication: PAIN
     Dosage: 600 MG, EACH EVENING
  3. ELAVIL [Concomitant]
     Indication: PAIN
     Dosage: 20 MG, EACH EVENING

REACTIONS (6)
  - CONVULSION [None]
  - DIZZINESS [None]
  - DROOLING [None]
  - FALL [None]
  - LOSS OF CONSCIOUSNESS [None]
  - NAUSEA [None]
